FAERS Safety Report 5583194-4 (Version None)
Quarter: 2007Q4

REPORT INFORMATION
  Report Type: 
  Country: None (occurrence: None)
  Receive Date: 20071130
  Receipt Date: 20061128
  Transmission Date: 20080405
  Serious: Yes (Disabling)
  Sender: FDA-Public Use
  Company Number: WAES 0611USA07322

PATIENT
  Age: 76 Year
  Sex: Female

DRUGS (4)
  1. FOSAMAX [Suspect]
     Indication: OSTEOPOROSIS
     Dosage: 70 MG/WKY/PO
     Route: 048
     Dates: end: 20050101
  2. ACTONEL [Suspect]
     Dates: start: 20050101
  3. DIOVAN [Concomitant]
  4. LIPITOR [Concomitant]

REACTIONS (1)
  - OESOPHAGITIS [None]
